FAERS Safety Report 6697604-2 (Version None)
Quarter: 2010Q2

REPORT INFORMATION
  Report Type: 
  Country: None (occurrence: None)
  Receive Date: 20100426
  Receipt Date: 20100412
  Transmission Date: 20101027
  Serious: No
  Sender: FDA-Public Use
  Company Number: US-ABBOTT-10P-163-0639096-00

PATIENT
  Age: 79 Year
  Sex: Female

DRUGS (1)
  1. AZMACORT [Suspect]
     Indication: ASTHMA
     Dates: start: 19900101, end: 20100401

REACTIONS (1)
  - ASTHMA [None]
